APPROVED DRUG PRODUCT: DOLENE AP-65
Active Ingredient: ACETAMINOPHEN; PROPOXYPHENE HYDROCHLORIDE
Strength: 650MG;65MG
Dosage Form/Route: TABLET;ORAL
Application: A085100 | Product #001
Applicant: LEDERLE LABORATORIES DIV AMERICAN CYANAMID CO
Approved: Approved Prior to Jan 1, 1982 | RLD: No | RS: No | Type: DISCN